FAERS Safety Report 4676612-7 (Version None)
Quarter: 2005Q2

REPORT INFORMATION
  Report Type: 
  Country: None (occurrence: None)
  Receive Date: 20050527
  Receipt Date: 20050520
  Transmission Date: 20051028
  Serious: Yes (Life-Threatening, Hospitalization)
  Sender: FDA-Public Use
  Company Number: ES-ROCHE-405247

PATIENT
  Age: 88 Year
  Sex: Female

DRUGS (1)
  1. VALIUM [Suspect]
     Indication: INSOMNIA
     Route: 048
     Dates: start: 20040322, end: 20040325

REACTIONS (1)
  - LEUKOCYTOCLASTIC VASCULITIS [None]
